FAERS Safety Report 5179671-0 (Version None)
Quarter: 2006Q4

REPORT INFORMATION
  Report Type: 
  Country: None (occurrence: None)
  Receive Date: 20061212
  Receipt Date: 20061128
  Transmission Date: 20070319
  Serious: Yes (Hospitalization)
  Sender: FDA-Public Use
  Company Number: 8019873

PATIENT
  Sex: Female

DRUGS (4)
  1. KEPPRA [Suspect]
     Indication: EPILEPSY
     Dosage: 500 MG 2/D PO
     Route: 048
     Dates: end: 20060923
  2. TOPAMAX [Suspect]
     Indication: EPILEPSY
     Dosage: 100 MG 2/D PO
     Route: 048
     Dates: end: 20060923
  3. MAREVAN [Concomitant]
  4. ELTHYRONE [Concomitant]

REACTIONS (7)
  - ACUTE FEBRILE NEUTROPHILIC DERMATOSIS [None]
  - AURICULAR SWELLING [None]
  - EAR PAIN [None]
  - FACIAL PAIN [None]
  - NAUSEA [None]
  - PYREXIA [None]
  - SWELLING FACE [None]
